FAERS Safety Report 6735164-8 (Version None)
Quarter: 2010Q2

REPORT INFORMATION
  Report Type: 
  Country: None (occurrence: None)
  Receive Date: 20100519
  Receipt Date: 20100519
  Transmission Date: 20101027
  Serious: Yes (Life-Threatening, Hospitalization)
  Sender: FDA-Public Use
  Company Number: None

PATIENT
  Sex: Female
  Weight: 86.1834 kg

DRUGS (2)
  1. CRESTOR [Suspect]
     Indication: BLOOD CHOLESTEROL INCREASED
     Dosage: 1 PILL ONCE DAILY
     Dates: start: 20081001, end: 20100401
  2. TRILIPIX [Suspect]
     Indication: BLOOD TRIGLYCERIDES INCREASED
     Dosage: 1 PILL ONCE DAILY
     Dates: start: 20091001, end: 20100401

REACTIONS (7)
  - CYSTITIS [None]
  - DEHYDRATION [None]
  - LIVER INJURY [None]
  - LOCALISED INFECTION [None]
  - MUSCLE SPASMS [None]
  - RENAL IMPAIRMENT [None]
  - SINUSITIS [None]
